FAERS Safety Report 6966684-9 (Version None)
Quarter: 2010Q3

REPORT INFORMATION
  Report Type: 
  Country: None (occurrence: None)
  Receive Date: 20100906
  Receipt Date: 20100825
  Transmission Date: 20110219
  Serious: No
  Sender: FDA-Public Use
  Company Number: US-BIOGENIDEC-2010BI029868

PATIENT
  Sex: Female

DRUGS (2)
  1. AVONEX [Suspect]
     Indication: MULTIPLE SCLEROSIS
     Route: 030
     Dates: start: 20000301, end: 20050301
  2. AVONEX [Suspect]
     Route: 030
     Dates: start: 20091015

REACTIONS (2)
  - INJECTION SITE PAIN [None]
  - VISUAL IMPAIRMENT [None]
